FAERS Safety Report 15660497 (Version 1)
Quarter: 2018Q4

REPORT INFORMATION
  Report Type: Spontaneous
  Country: US (occurrence: US)
  Receive Date: 20181127
  Receipt Date: 20181127
  Transmission Date: 20190205
  Serious: No
  Sender: FDA-Public Use
  Company Number: US-ENDO PHARMACEUTICALS INC-2018-019622

PATIENT
  Sex: Female

DRUGS (1)
  1. OXYBUTYNIN CHLORIDE TABLETS [Suspect]
     Active Substance: OXYBUTYNIN CHLORIDE
     Indication: BLADDER SPASM
     Dosage: TAKING HALF A PILL NOW DOWN TO QUARTER
     Route: 065

REACTIONS (4)
  - Constipation [Unknown]
  - Wrong technique in product usage process [Unknown]
  - Dizziness [Unknown]
  - Abdominal pain upper [Unknown]
